FAERS Safety Report 7442906-5 (Version None)
Quarter: 2011Q2

REPORT INFORMATION
  Report Type: 
  Country: None (occurrence: None)
  Receive Date: 20110419
  Receipt Date: 20110401
  Transmission Date: 20111010
  Serious: Yes (Other)
  Sender: FDA-Public Use
  Company Number: 029928

PATIENT
  Sex: Male
  Weight: 50.8 kg

DRUGS (4)
  1. KEPPRA [Suspect]
     Indication: EPILEPSY
     Dosage: 250 MG BID ORAL; 250 MG QD ORAL
     Route: 048
     Dates: start: 20110314, end: 20110315
  2. KEPPRA [Suspect]
     Indication: EPILEPSY
     Dosage: 250 MG BID ORAL; 250 MG QD ORAL
     Route: 048
     Dates: start: 20110225, end: 20110313
  3. LANDSEN [Concomitant]
  4. ALESION [Concomitant]

REACTIONS (11)
  - VISUAL IMPAIRMENT [None]
  - EMOTIONAL DISTRESS [None]
  - HEADACHE [None]
  - HYPERVENTILATION [None]
  - SOMNOLENCE [None]
  - VISION BLURRED [None]
  - TREMOR [None]
  - GAIT DISTURBANCE [None]
  - GRIP STRENGTH DECREASED [None]
  - LACRIMATION INCREASED [None]
  - MUSCULAR WEAKNESS [None]
